FAERS Safety Report 19093714 (Version 7)
Quarter: 2021Q4

REPORT INFORMATION
  Report Type: Report from Study
  Country: US (occurrence: US)
  Receive Date: 20210405
  Receipt Date: 20211210
  Transmission Date: 20220303
  Serious: Yes (Hospitalization, Other)
  Sender: FDA-Public Use
  Company Number: NVSC2021US076557

PATIENT
  Age: 67 Year
  Sex: Male

DRUGS (4)
  1. ENTRESTO [Suspect]
     Active Substance: SACUBITRIL\VALSARTAN
     Indication: Product used for unknown indication
     Dosage: 1 DF, Q12H ( 24/26 MG)
     Route: 048
     Dates: start: 20210331
  2. ENTRESTO [Suspect]
     Active Substance: SACUBITRIL\VALSARTAN
     Dosage: UNK
     Route: 065
  3. FARXIGA [Suspect]
     Active Substance: DAPAGLIFLOZIN PROPANEDIOL
     Indication: Product used for unknown indication
     Dosage: UNK
     Route: 065
  4. METOPROLOL [Suspect]
     Active Substance: METOPROLOL
     Indication: Product used for unknown indication
     Dosage: UNK
     Route: 065

REACTIONS (13)
  - Bradycardia [Unknown]
  - Ejection fraction decreased [Recovering/Resolving]
  - Pain [Unknown]
  - Oropharyngeal discomfort [Unknown]
  - Dry mouth [Unknown]
  - Hypoaesthesia oral [Recovered/Resolved]
  - Palpitations [Recovering/Resolving]
  - Middle insomnia [Unknown]
  - Dysphonia [Unknown]
  - Blister [Not Recovered/Not Resolved]
  - Feeling abnormal [Unknown]
  - Gait inability [Not Recovered/Not Resolved]
  - Cough [Unknown]

NARRATIVE: CASE EVENT DATE: 20211006
